FAERS Safety Report 8534525 (Version 5)
Quarter: 2012Q4

REPORT INFORMATION
  Report Type: 
  Country: US (occurrence: US)
  Receive Date: 20120427
  Receipt Date: 20121121
  Transmission Date: 20130627
  Serious: Yes (Other)
  Sender: FDA-Public Use
  Company Number: US-JNJFOC-20120408695

PATIENT
  Age: 75 None
  Sex: Male
  Weight: 67.59 kg

DRUGS (19)
  1. XARELTO [Suspect]
     Indication: CEREBROVASCULAR ACCIDENT PROPHYLAXIS
     Route: 048
     Dates: start: 201204
  2. XARELTO [Suspect]
     Indication: ATRIAL FIBRILLATION
     Route: 048
     Dates: start: 201204
  3. TAURINE [Suspect]
     Indication: ARRHYTHMIA
     Route: 048
     Dates: end: 201205
  4. TAURINE [Suspect]
     Indication: ARRHYTHMIA
     Route: 048
  5. TAURINE [Suspect]
     Indication: ARRHYTHMIA
     Route: 048
     Dates: start: 2012
  6. TAURINE [Suspect]
     Indication: CARDIAC DISORDER
     Route: 048
     Dates: start: 2012
  7. TAURINE [Suspect]
     Indication: CARDIAC DISORDER
     Route: 048
  8. TAURINE [Suspect]
     Indication: CARDIAC DISORDER
     Route: 048
     Dates: end: 201205
  9. ARGININE [Suspect]
     Indication: ARRHYTHMIA
  10. ARGININE [Suspect]
     Indication: ARRHYTHMIA
  11. PRADAXA [Suspect]
     Indication: PRODUCT USED FOR UNKNOWN INDICATION
     Dates: end: 201204
  12. METOPROLOL [Concomitant]
     Indication: ARRHYTHMIA
     Route: 048
  13. METOPROLOL [Concomitant]
     Indication: BLOOD PRESSURE
     Route: 048
  14. AMIODARONE [Concomitant]
     Indication: CARDIAC DISORDER
     Route: 048
     Dates: start: 2012
  15. AMIODARONE [Concomitant]
     Indication: CARDIAC DISORDER
     Route: 048
     Dates: start: 2012
  16. AVODART [Concomitant]
     Indication: NEOPLASM PROPHYLAXIS
     Route: 048
     Dates: start: 2002
  17. AVODART [Concomitant]
     Indication: PROSTATOMEGALY
     Route: 048
     Dates: start: 2002
  18. LASIX [Concomitant]
     Indication: OEDEMA
     Route: 048
  19. POTASSIUM [Concomitant]
     Indication: MEDICAL DIET
     Route: 048

REACTIONS (17)
  - Tachycardia [Not Recovered/Not Resolved]
  - Blood pressure increased [Recovered/Resolved]
  - Hypotension [Recovered/Resolved]
  - Sinus bradycardia [Not Recovered/Not Resolved]
  - Paraesthesia [Recovering/Resolving]
  - Arrhythmia [Unknown]
  - Drug ineffective [Recovered/Resolved]
  - Abnormal loss of weight [Not Recovered/Not Resolved]
  - Feeling abnormal [Not Recovered/Not Resolved]
  - Fatigue [Not Recovered/Not Resolved]
  - Dizziness [Not Recovered/Not Resolved]
  - Joint swelling [Recovering/Resolving]
  - Muscle tightness [Not Recovered/Not Resolved]
  - Tooth injury [Not Recovered/Not Resolved]
  - Oral pain [Not Recovered/Not Resolved]
  - Faecal incontinence [Not Recovered/Not Resolved]
  - Asthenia [Not Recovered/Not Resolved]
